FAERS Safety Report 24398224 (Version 1)
Quarter: 2024Q4

REPORT INFORMATION
  Report Type: Report from Study
  Country: DE (occurrence: DE)
  Receive Date: 20241004
  Receipt Date: 20241004
  Transmission Date: 20250115
  Serious: Yes (Other)
  Sender: APELLIS PHARMACEUTICALS
  Company Number: DE-BIOVITRUM-2024-DE-000676

PATIENT

DRUGS (2)
  1. PEGCETACOPLAN [Suspect]
     Active Substance: PEGCETACOPLAN
     Indication: Paroxysmal nocturnal haemoglobinuria
     Dosage: 1080 MG TWICE WEEKLY
     Route: 058
     Dates: start: 20230821
  2. DICLOFENAC [Concomitant]
     Active Substance: DICLOFENAC
     Indication: Arthralgia
     Dosage: DAILY
     Dates: start: 20240109

REACTIONS (5)
  - Erectile dysfunction [Unknown]
  - Pyrexia [Unknown]
  - Infection [Unknown]
  - Chromaturia [Recovered/Resolved]
  - Arthralgia [Unknown]

NARRATIVE: CASE EVENT DATE: 20240109
